FAERS Safety Report 5012077-3 (Version None)
Quarter: 2006Q2

REPORT INFORMATION
  Report Type: 
  Country: None (occurrence: None)
  Receive Date: 20060526
  Receipt Date: 20060223
  Transmission Date: 20061013
  Serious: Yes (Hospitalization)
  Sender: FDA-Public Use
  Company Number: DE-GLAXOSMITHKLINE-D0048899B

PATIENT
  Sex: Female

DRUGS (1)
  1. PAROXETINE HCL [Suspect]
     Indication: DEPRESSION
     Dosage: 20MG PER DAY

REACTIONS (20)
  - APATHY [None]
  - ASTHENIA [None]
  - CHOKING [None]
  - CRYING [None]
  - CYANOSIS [None]
  - DRUG EXPOSURE DURING PREGNANCY [None]
  - DRUG EXPOSURE VIA BREAST MILK [None]
  - DYSPHONIA [None]
  - ERYTHEMA [None]
  - EXTRASYSTOLES [None]
  - EYELID FUNCTION DISORDER [None]
  - FATIGUE [None]
  - FEELING ABNORMAL [None]
  - HYPERVENTILATION [None]
  - ILL-DEFINED DISORDER [None]
  - OESOPHAGEAL DISORDER [None]
  - SOMNOLENCE [None]
  - STRIDOR [None]
  - TRACHEAL DISORDER [None]
  - WHITE BLOOD CELL COUNT INCREASED [None]
